FAERS Safety Report 5114215-0 (Version None)
Quarter: 2006Q3

REPORT INFORMATION
  Report Type: 
  Country: None (occurrence: None)
  Receive Date: 20060925
  Receipt Date: 20060918
  Transmission Date: 20061208
  Serious: Yes (Hospitalization)
  Sender: FDA-Public Use
  Company Number: NL-ROXANE LABORATORIES, INC-2006-BP-10936RO

PATIENT
  Sex: Male

DRUGS (2)
  1. METHADONE HCL [Suspect]
     Indication: DRUG WITHDRAWAL MAINTENANCE THERAPY
     Dosage: IN-UTERO EXPOSURE
  2. PHENOBARBITAL [Concomitant]
     Indication: AGITATION NEONATAL

REACTIONS (7)
  - AGITATION [None]
  - AGITATION NEONATAL [None]
  - APGAR SCORE LOW [None]
  - DRUG WITHDRAWAL SYNDROME NEONATAL [None]
  - HYPERREFLEXIA [None]
  - HYPERTONIA [None]
  - HYPERTONIA NEONATAL [None]
